FAERS Safety Report 8291783-1 (Version None)
Quarter: 2012Q2

REPORT INFORMATION
  Report Type: 
  Country: None (occurrence: None)
  Receive Date: 20120417
  Receipt Date: 20110301
  Transmission Date: 20120825
  Serious: No
  Sender: FDA-Public Use
  Company Number: US-ASTRAZENECA-2011SE11896

PATIENT
  Age: 55 Year
  Sex: Female

DRUGS (3)
  1. NEXIUM [Suspect]
     Route: 048
  2. MYTAB [Concomitant]
  3. DOCQLACE [Concomitant]

REACTIONS (8)
  - FAECAL INCONTINENCE [None]
  - CONSTIPATION [None]
  - GASTROOESOPHAGEAL REFLUX DISEASE [None]
  - MENOPAUSE [None]
  - DRUG DOSE OMISSION [None]
  - GASTROINTESTINAL INFLAMMATION [None]
  - ABDOMINAL DISCOMFORT [None]
  - INSOMNIA [None]
